FAERS Safety Report 19933512 (Version 1)
Quarter: 2021Q4

REPORT INFORMATION
  Report Type: Spontaneous
  Country: US (occurrence: US)
  Receive Date: 20211007
  Receipt Date: 20211007
  Transmission Date: 20220304
  Serious: No
  Sender: FDA-Public Use
  Company Number: None

PATIENT

DRUGS (2)
  1. SOTALOL [Suspect]
     Active Substance: SOTALOL
  2. SOTALOL [Suspect]
     Active Substance: SOTALOL

REACTIONS (4)
  - Product colour issue [None]
  - Product shape issue [None]
  - Product packaging confusion [None]
  - Product label issue [None]
